FAERS Safety Report 4512988-9 (Version None)
Quarter: 2004Q4

REPORT INFORMATION
  Report Type: 
  Country: None (occurrence: None)
  Receive Date: 20041124
  Receipt Date: 20041111
  Transmission Date: 20050328
  Serious: Yes (Congenital Anomaly, Other)
  Sender: FDA-Public Use
  Company Number: 200409149

PATIENT
  Age: 31 Year
  Sex: Female

DRUGS (1)
  1. TAZORAC [Suspect]
     Indication: ACNE
     Dates: start: 20040412, end: 20040501

REACTIONS (5)
  - ABORTION SPONTANEOUS [None]
  - ANENCEPHALY [None]
  - BLOOD FOLATE DECREASED [None]
  - DRUG EXPOSURE DURING PREGNANCY [None]
  - PREGNANCY [None]
